FAERS Safety Report 8469105 (Version 2)
Quarter: 2013Q2

REPORT INFORMATION
  Report Type: Spontaneous
  Country: US (occurrence: US)
  Receive Date: 20120321
  Receipt Date: 20130424
  Transmission Date: 20140414
  Serious: No
  Sender: FDA-Public Use
  Company Number: US-PFIZER INC-2011202265

PATIENT
  Age: 46 Year
  Sex: Female

DRUGS (6)
  1. LYRICA [Suspect]
     Indication: BACK PAIN
     Dosage: 200 MG, 1X/DAY
     Dates: start: 2008
  2. LYRICA [Suspect]
     Indication: CERVICAL VERTEBRAL FRACTURE
  3. LYRICA [Suspect]
     Indication: INTERVERTEBRAL DISC PROTRUSION
  4. PREMARIN [Suspect]
     Indication: HYSTERECTOMY
     Dosage: 1.25 MG, 1X/DAY
     Route: 048
     Dates: start: 1994
  5. CRESTOR [Concomitant]
     Indication: BLOOD CHOLESTEROL INCREASED
     Dosage: 20 MG, 1X/DAY
  6. VICODIN [Concomitant]
     Indication: PAIN
     Dosage: UNK

REACTIONS (6)
  - Pain [Unknown]
  - Nasopharyngitis [Unknown]
  - Withdrawal syndrome [Unknown]
  - Nausea [Unknown]
  - Asthenia [Unknown]
  - Feeling abnormal [Unknown]
